FAERS Safety Report 19026669 (Version 9)
Quarter: 2025Q1

REPORT INFORMATION
  Report Type: Report from Study
  Country: CA (occurrence: CA)
  Receive Date: 20210318
  Receipt Date: 20250207
  Transmission Date: 20250408
  Serious: Yes (Other)
  Sender: ROCHE
  Company Number: CA-ROCHE-2786893

PATIENT
  Age: 34 Year
  Sex: Female

DRUGS (5)
  1. OCREVUS [Suspect]
     Active Substance: OCRELIZUMAB
     Indication: Relapsing-remitting multiple sclerosis
     Dosage: 300 MG AT DAY 0 AND 14, THEN 600 MG EVERY 6 MONTH
     Route: 040
     Dates: start: 20191017
  2. OCREVUS [Suspect]
     Active Substance: OCRELIZUMAB
     Route: 040
  3. CLONAZEPAM [Suspect]
     Active Substance: CLONAZEPAM
     Indication: Product used for unknown indication
     Route: 065
  4. ALESSE 28 [Concomitant]
     Active Substance: ETHINYL ESTRADIOL\LEVONORGESTREL
  5. GABAPENTIN [Concomitant]
     Active Substance: GABAPENTIN

REACTIONS (17)
  - Pharyngitis [Recovered/Resolved with Sequelae]
  - Sialoadenitis [Recovering/Resolving]
  - Depression [Not Recovered/Not Resolved]
  - Tooth infection [Recovered/Resolved with Sequelae]
  - Pharyngitis streptococcal [Recovered/Resolved with Sequelae]
  - Localised infection [Recovered/Resolved with Sequelae]
  - Chest injury [Not Recovered/Not Resolved]
  - Hypoaesthesia [Not Recovered/Not Resolved]
  - Paraesthesia [Not Recovered/Not Resolved]
  - Muscle spasms [Not Recovered/Not Resolved]
  - Anxiety [Not Recovered/Not Resolved]
  - Fall [Unknown]
  - Anxiety [Recovering/Resolving]
  - Somnolence [Recovered/Resolved]
  - Chest pain [Not Recovered/Not Resolved]
  - Infusion related reaction [Recovered/Resolved]
  - Panic reaction [Recovering/Resolving]

NARRATIVE: CASE EVENT DATE: 20250124
